FAERS Safety Report 10177924 (Version 1)
Quarter: 2014Q2

REPORT INFORMATION
  Report Type: Spontaneous
  Country: US (occurrence: US)
  Receive Date: 20140516
  Receipt Date: 20140516
  Transmission Date: 20141212
  Serious: Yes (Hospitalization)
  Sender: FDA-Public Use
  Company Number: PHEH2014US009666

PATIENT
  Age: 68 Year
  Sex: Female
  Weight: 59 kg

DRUGS (3)
  1. RECLAST [Suspect]
     Dosage: UNK UKN, UNK
     Dates: start: 20140210
  2. AMPYRA [Suspect]
     Indication: GAIT DISTURBANCE
     Dosage: 10 MG, BID (EVERY 12 HOURS)
     Route: 048
     Dates: start: 20101005
  3. BACLOFEN [Concomitant]
     Dosage: 10 MG, TID

REACTIONS (5)
  - Multiple sclerosis relapse [Recovering/Resolving]
  - Muscular weakness [Recovering/Resolving]
  - Mobility decreased [Recovering/Resolving]
  - Hypoaesthesia [Recovering/Resolving]
  - General symptom [Recovering/Resolving]
